FAERS Safety Report 25318093 (Version 1)
Quarter: 2025Q2

REPORT INFORMATION
  Report Type: Spontaneous
  Country: US (occurrence: US)
  Receive Date: 20250515
  Receipt Date: 20250515
  Transmission Date: 20250716
  Serious: No
  Sender: DBL GROUP
  Company Number: US-DBL Pharmaceuticals, Inc.-2176713

PATIENT

DRUGS (4)
  1. METHOCARBAMOL [Suspect]
     Active Substance: METHOCARBAMOL
     Indication: Muscle spasms
  2. BACLOFEN [Suspect]
     Active Substance: BACLOFEN
  3. MOTRIN [Suspect]
     Active Substance: IBUPROFEN
  4. PREGABALIN [Suspect]
     Active Substance: PREGABALIN

REACTIONS (2)
  - Muscle spasms [Unknown]
  - Condition aggravated [Unknown]
